FAERS Safety Report 4709310-1 (Version None)
Quarter: 2005Q3

REPORT INFORMATION
  Report Type: 
  Country: None (occurrence: None)
  Receive Date: 20050706
  Receipt Date: 20050622
  Transmission Date: 20060218
  Serious: Yes (Death, Life-Threatening)
  Sender: FDA-Public Use
  Company Number: 2005JP001133

PATIENT
  Age: 71 Year
  Sex: Female
  Weight: 40.3 kg

DRUGS (9)
  1. FUNGUARD (MICAFUNGIN) INJECTION [Suspect]
     Indication: SYSTEMIC MYCOSIS
     Dosage: 300.00 MG, UID/QD, IV DRIP
     Route: 041
     Dates: start: 20050518, end: 20050531
  2. FUNGIZONE [Suspect]
     Dosage: 15.00 MG, UID/QD, IV NOS
     Route: 042
     Dates: start: 20050519, end: 20050531
  3. UNASYN [Suspect]
     Indication: SYSTEMIC MYCOSIS
     Dosage: 3.00 G, BID, IV NOS
     Route: 042
     Dates: start: 20050522, end: 20050531
  4. ORGARAN (DANAPAROID SODIUM) INJ. [Suspect]
     Indication: THROMBOSIS PROPHYLAXIS
     Dosage: 1.00 DF, BID, IV NOS
     Route: 042
     Dates: start: 20050524, end: 20050601
  5. DENOSINE      TANABE  (GANCICLOVIR) [Concomitant]
  6. PREDNISOLONE [Concomitant]
  7. MIRACLID (ULINASTATIN) INJECTION [Concomitant]
  8. FUTHAN (NAFAMOSTAT MESILATE) INJECTION [Concomitant]
  9. GRAN (FILGRASTIM) INJECTION [Concomitant]

REACTIONS (26)
  - ABDOMINAL PAIN [None]
  - ACIDOSIS [None]
  - APHAGIA [None]
  - BLOOD GLUCOSE INCREASED [None]
  - BRAIN DEATH [None]
  - BRAIN STEM SYNDROME [None]
  - CARDIAC FAILURE [None]
  - CEREBELLAR INFARCTION [None]
  - CEREBRAL ARTERY EMBOLISM [None]
  - CEREBRAL FUNGAL INFECTION [None]
  - CHOLELITHIASIS [None]
  - EMBOLIC CEREBRAL INFARCTION [None]
  - EMOTIONAL DISTRESS [None]
  - ENCEPHALITIS [None]
  - GENERAL PHYSICAL HEALTH DETERIORATION [None]
  - GRAND MAL CONVULSION [None]
  - PANCREAS INFECTION [None]
  - PANCREATITIS ACUTE [None]
  - PANCREATITIS HAEMORRHAGIC [None]
  - PANCREATITIS NECROTISING [None]
  - PNEUMONIA ASPERGILLUS [None]
  - PULMONARY CAVITATION [None]
  - RESPIRATORY ARREST [None]
  - SOMNOLENCE [None]
  - SYSTEMIC MYCOSIS [None]
  - TONIC CONVULSION [None]
